FAERS Safety Report 9474241 (Version 1)
Quarter: 2013Q3

REPORT INFORMATION
  Report Type: Spontaneous
  Country: GB (occurrence: None)
  Receive Date: 20130820
  Receipt Date: 20130820
  Transmission Date: 20140515
  Serious: Yes (Other)
  Sender: FDA-Public Use
  Company Number: GB-DEXPHARM-20130475

PATIENT
  Age: 64 Year
  Sex: Female

DRUGS (2)
  1. OMEPRAZOLE [Suspect]
     Indication: DYSPEPSIA
     Dates: start: 20121030, end: 20121119
  2. GAVISCON [Concomitant]

REACTIONS (7)
  - Sunburn [None]
  - Skin tightness [None]
  - Dry skin [None]
  - Pruritus [None]
  - Swelling face [None]
  - Rash macular [None]
  - Erythema [None]
